FAERS Safety Report 19011126 (Version 1)
Quarter: 2021Q1

REPORT INFORMATION
  Report Type: Spontaneous
  Country: US (occurrence: US)
  Receive Date: 20210312
  Receipt Date: 20210312
  Transmission Date: 20210420
  Serious: Yes (Other)
  Sender: FDA-Public Use
  Company Number: None

PATIENT
  Age: 54 Year
  Sex: Female
  Weight: 90 kg

DRUGS (15)
  1. TRESIBA [Concomitant]
     Active Substance: INSULIN DEGLUDEC
  2. MAXALT [Concomitant]
     Active Substance: RIZATRIPTAN BENZOATE
  3. CYMBALTA [Concomitant]
     Active Substance: DULOXETINE HYDROCHLORIDE
  4. METFORMIN ER 500MG SUBSTITUTED FOR GLUCOPHAGE XR500MG [Suspect]
     Active Substance: METFORMIN HYDROCHLORIDE
     Indication: DIABETIC NEUROPATHY
     Dosage: ?          QUANTITY:360 TABLET(S);?
     Route: 048
     Dates: start: 20201201, end: 20210311
  5. AMLODIPINE [Concomitant]
     Active Substance: AMLODIPINE BESYLATE
  6. TUMS [Concomitant]
     Active Substance: CALCIUM CARBONATE
  7. BARIATICPAL MULTIVITAMIN [Concomitant]
  8. GLUCOPHAGE XR [Concomitant]
     Active Substance: METFORMIN HYDROCHLORIDE
  9. SYNTHROID [Concomitant]
     Active Substance: LEVOTHYROXINE SODIUM
  10. SINGULAIR [Concomitant]
     Active Substance: MONTELUKAST SODIUM
  11. IRBESARTAN. [Concomitant]
     Active Substance: IRBESARTAN
  12. OZEMPIC [Concomitant]
     Active Substance: SEMAGLUTIDE
  13. ALBUTEROL. [Concomitant]
     Active Substance: ALBUTEROL
  14. DEXILANT [Concomitant]
     Active Substance: DEXLANSOPRAZOLE
  15. ZOFRAN [Concomitant]
     Active Substance: ONDANSETRON HYDROCHLORIDE

REACTIONS (1)
  - Recalled product administered [None]

NARRATIVE: CASE EVENT DATE: 20201201
